FAERS Safety Report 11499134 (Version 2)
Quarter: 2015Q4

REPORT INFORMATION
  Report Type: Report from Study
  Country: AT (occurrence: AT)
  Receive Date: 20150913
  Receipt Date: 20151012
  Transmission Date: 20160304
  Serious: Yes (Hospitalization)
  Sender: FDA-Public Use
  Company Number: AT-ELI_LILLY_AND_COMPANY-AT201504006872

PATIENT
  Age: 41 Year
  Sex: Male
  Weight: 85 kg

DRUGS (9)
  1. PROTHIPENDYL [Suspect]
     Active Substance: PROTHIPENDYL
     Indication: MANIA
     Dosage: UNK
     Route: 051
  2. ZYPADHERA [Suspect]
     Active Substance: OLANZAPINE PAMOATE
     Indication: SCHIZOPHRENIA
     Dosage: 300 MG, EVERY TWO WEEKS
     Route: 030
     Dates: start: 20120912, end: 20130102
  3. ABILIFY [Suspect]
     Active Substance: ARIPIPRAZOLE
     Indication: PRODUCT USED FOR UNKNOWN INDICATION
     Route: 048
  4. OLANZAPINE. [Suspect]
     Active Substance: OLANZAPINE
     Indication: SCHIZOPHRENIA
     Dosage: 20 MG, QD
     Route: 048
  5. PSYCHOPAX [Suspect]
     Active Substance: DIAZEPAM
     Indication: PRODUCT USED FOR UNKNOWN INDICATION
  6. CATAPRESSAN                        /00171101/ [Suspect]
     Active Substance: CLONIDINE
     Indication: MANIA
     Route: 065
  7. CIATYL                             /00075802/ [Suspect]
     Active Substance: CLOPENTHIXOL HYDROCHLORIDE
     Indication: PRODUCT USED FOR UNKNOWN INDICATION
     Route: 065
  8. MIDAZOLAM [Suspect]
     Active Substance: MIDAZOLAM\MIDAZOLAM HYDROCHLORIDE
     Indication: MANIA
     Route: 051
  9. GEWACALM [Concomitant]
     Dosage: UNK
     Route: 065
     Dates: start: 20121101, end: 20121212

REACTIONS (9)
  - Antipsychotic drug level increased [Recovered/Resolved]
  - Urticaria [Unknown]
  - Constipation [Unknown]
  - Enuresis [Unknown]
  - Urinary retention [Unknown]
  - Mania [Recovered/Resolved]
  - Delirium [Unknown]
  - Sedation [Unknown]
  - Physical assault [Recovered/Resolved]

NARRATIVE: CASE EVENT DATE: 201212
